FAERS Safety Report 6724783-0 (Version None)
Quarter: 2010Q2

REPORT INFORMATION
  Report Type: 
  Country: None (occurrence: None)
  Receive Date: 20100513
  Receipt Date: 20100510
  Transmission Date: 20101027
  Serious: Yes (Death, Hospitalization)
  Sender: FDA-Public Use
  Company Number: JP-BAYER-200915152BYL

PATIENT
  Age: 76 Year
  Sex: Male
  Weight: 60 kg

DRUGS (15)
  1. NEXAVAR [Suspect]
     Indication: HEPATIC NEOPLASM MALIGNANT
     Dosage: TOTAL DAILY DOSE: 800 MG  UNIT DOSE: 200 MG
     Route: 048
     Dates: start: 20090616, end: 20090925
  2. NEXAVAR [Suspect]
     Dosage: TOTAL DAILY DOSE: 400 MG  UNIT DOSE: 200 MG
     Route: 048
     Dates: start: 20090926, end: 20091203
  3. MAGMITT [Concomitant]
     Dosage: UNIT DOSE: 330 MG
     Route: 048
  4. GASMOTIN [Concomitant]
     Dosage: UNIT DOSE: 5 MG
     Route: 048
  5. RIZE [Concomitant]
     Dosage: UNIT DOSE: 5 MG
     Route: 048
  6. BASEN [Concomitant]
     Dosage: UNIT DOSE: 0.3 MG
     Route: 048
  7. ASPIRIN [Concomitant]
     Indication: CEREBRAL INFARCTION
     Dosage: UNIT DOSE: 100 MG
     Route: 048
  8. PARIET [Concomitant]
     Indication: GASTRITIS PROPHYLAXIS
     Dosage: UNIT DOSE: 10 MG
     Route: 048
  9. LASIX [Concomitant]
     Indication: OEDEMA PERIPHERAL
     Dosage: UNIT DOSE: 20 MG
     Route: 048
  10. PLETAL [Concomitant]
     Indication: CEREBRAL INFARCTION
     Dosage: UNIT DOSE: 100 MG
     Route: 048
  11. HERBESSER [Concomitant]
     Dosage: UNIT DOSE: 30 MG
     Route: 048
  12. PURSENNID [Concomitant]
     Dosage: UNIT DOSE: 12 MG
     Route: 048
  13. GABAPEN [Concomitant]
     Dosage: UNIT DOSE: 200 MG
     Route: 048
  14. DUROTEP [Concomitant]
     Dosage: SINCE BEFORE NEXAVAR ADMINISTRATION
     Route: 062
  15. LANTUS [Concomitant]
     Dosage: SINCE BEFORE NEXAVAR ADMINISTRATION
     Route: 058

REACTIONS (3)
  - BLOOD COUNT ABNORMAL [None]
  - HEPATIC NEOPLASM MALIGNANT [None]
  - PALMAR-PLANTAR ERYTHRODYSAESTHESIA SYNDROME [None]
